FAERS Safety Report 4600919-2 (Version None)
Quarter: 2005Q1

REPORT INFORMATION
  Report Type: 
  Country: None (occurrence: None)
  Receive Date: 20050127
  Receipt Date: 20041022
  Transmission Date: 20050727
  Serious: No
  Sender: FDA-Public Use
  Company Number: USA041082023

PATIENT
  Age: 39 Year
  Sex: Male

DRUGS (2)
  1. STRATTERA [Suspect]
     Dosage: 25 MG DAY
     Dates: start: 20041010
  2. BUPROPION HCL [Concomitant]

REACTIONS (4)
  - DYSURIA [None]
  - MICTURITION URGENCY [None]
  - URINARY RETENTION [None]
  - URINE ANALYSIS ABNORMAL [None]
